FAERS Safety Report 24546961 (Version 1)
Quarter: 2024Q4

REPORT INFORMATION
  Report Type: Report from Study
  Country: US (occurrence: US)
  Receive Date: 20241025
  Receipt Date: 20241025
  Transmission Date: 20250115
  Serious: Yes (Hospitalization)
  Sender: ABBVIE
  Company Number: US-ABBVIE-5968928

PATIENT
  Age: 63 Year
  Sex: Male

DRUGS (1)
  1. SKYRIZI [Suspect]
     Active Substance: RISANKIZUMAB-RZAA
     Indication: Psoriasis
     Route: 058
     Dates: start: 20200128

REACTIONS (8)
  - Blood glucose decreased [Recovered/Resolved]
  - Brain fog [Recovering/Resolving]
  - Head discomfort [Recovered/Resolved]
  - Left ventricular dysfunction [Recovering/Resolving]
  - Headache [Recovered/Resolved]
  - Stress [Recovered/Resolved]
  - Hyperhidrosis [Recovered/Resolved]
  - Sensory disturbance [Recovering/Resolving]

NARRATIVE: CASE EVENT DATE: 20240911
